FAERS Safety Report 6906102-X (Version None)
Quarter: 2010Q3

REPORT INFORMATION
  Report Type: 
  Country: None (occurrence: None)
  Receive Date: 20100804
  Receipt Date: 20090524
  Transmission Date: 20110219
  Serious: No
  Sender: FDA-Public Use
  Company Number: US-PFIZER INC-2009188983

PATIENT
  Sex: Female

DRUGS (4)
  1. ZOLOFT [Suspect]
     Indication: DEPRESSION
     Dates: start: 20090201
  2. SEROQUEL [Concomitant]
     Indication: SCHIZOPHRENIA
     Dosage: 200 MG, UNK
  3. RISPERDAL [Concomitant]
     Dosage: 2 MG, UNK
  4. RISPERIDONE [Concomitant]
     Dosage: UNK

REACTIONS (2)
  - ANXIETY [None]
  - NERVOUSNESS [None]
